FAERS Safety Report 9820996 (Version 2)
Quarter: 2014Q4

REPORT INFORMATION
  Report Type: Report from Study
  Country: CA (occurrence: CA)
  Receive Date: 20140116
  Receipt Date: 20141231
  Transmission Date: 20150529
  Serious: Yes (Hospitalization, Other)
  Sender: FDA-Public Use
  Company Number: CA-BRISTOL-MYERS SQUIBB COMPANY-20017778

PATIENT
  Age: 78 Year
  Sex: Female

DRUGS (10)
  1. VALSARTAN. [Concomitant]
     Active Substance: VALSARTAN
  2. NEXIUM [Concomitant]
     Active Substance: ESOMEPRAZOLE MAGNESIUM
  3. CODEINE [Concomitant]
     Active Substance: CODEINE
  4. ABATACEPT [Suspect]
     Active Substance: ABATACEPT
     Indication: RHEUMATOID ARTHRITIS
     Dosage: 1DF=750 UNIT NOS
     Route: 042
     Dates: start: 20130705
  5. ACTONEL [Concomitant]
     Active Substance: RISEDRONATE SODIUM
  6. LYRICA [Concomitant]
     Active Substance: PREGABALIN
  7. BUSCOPAN [Concomitant]
     Active Substance: BUTYLSCOPOLAMINE BROMIDE
  8. PRISTIQ EXTENDED RELEASE [Concomitant]
     Active Substance: DESVENLAFAXINE SUCCINATE
  9. METHOTREXATE [Concomitant]
     Active Substance: METHOTREXATE
  10. MIRTAZAPINE. [Concomitant]
     Active Substance: MIRTAZAPINE

REACTIONS (1)
  - Myocardial infarction [Recovering/Resolving]

NARRATIVE: CASE EVENT DATE: 20131218
